FAERS Safety Report 8477588 (Version 2)
Quarter: 2012Q4

REPORT INFORMATION
  Report Type: Spontaneous
  Country: BR (occurrence: None)
  Receive Date: 20120319
  Receipt Date: 20121123
  Transmission Date: 20130627
  Serious: Yes (Other)
  Sender: FDA-Public Use
  Company Number: THQ2012A01372

PATIENT
  Sex: Female

DRUGS (10)
  1. ACTOS [Suspect]
     Indication: TYPE 2 DIABETES MELLITUS
     Dosage: CURRENTLY 30 MG. BUT SHE HAD ALREADY USED 45 MG. (CURRENTLY 30 MG. BUT SHE HAD ALREADY USED 45 MG)
     Route: 048
     Dates: start: 20001206, end: 20120210
  2. ALPRAZOLAM [Concomitant]
  3. FUROSEMIDE SODIUM [Concomitant]
  4. SPIRONOLACTONE, FUROSEMIDE [Concomitant]
  5. GLIMEPIRIDE [Concomitant]
  6. ATENOLOL [Concomitant]
  7. SAXAGLIPTIN HYDROCHLORIDE (SAXAGLIPTIN) [Concomitant]
  8. TRIMETAZIDINE HYDROCHLORIDE [Concomitant]
  9. PROMETHAZINE [Concomitant]
  10. INSULIN [Concomitant]

REACTIONS (3)
  - Haematuria [None]
  - Bladder cancer [None]
  - Squamous cell carcinoma [None]
